FAERS Safety Report 11993098 (Version 3)
Quarter: 2016Q2

REPORT INFORMATION
  Report Type: Spontaneous
  Country: US (occurrence: US)
  Receive Date: 20160203
  Receipt Date: 20160427
  Transmission Date: 20160815
  Serious: Yes (Hospitalization)
  Sender: FDA-Public Use
  Company Number: US-009507513-1601USA004545

PATIENT
  Age: 70 Year
  Sex: Female
  Weight: 56.24 kg

DRUGS (7)
  1. LIPITOR [Concomitant]
     Active Substance: ATORVASTATIN CALCIUM
     Dosage: UNK
  2. PHENAZOPYRIDINE HYDROCHLORIDE. [Concomitant]
     Active Substance: PHENAZOPYRIDINE HYDROCHLORIDE
     Dosage: UNK
  3. VITAMIN D [Concomitant]
     Active Substance: CHOLECALCIFEROL
  4. BELSOMRA [Suspect]
     Active Substance: SUVOREXANT
     Indication: INITIAL INSOMNIA
     Dosage: 10 MG, ONCE
     Route: 048
     Dates: start: 20151218, end: 20151219
  5. BELSOMRA [Suspect]
     Active Substance: SUVOREXANT
     Dosage: HALF A TABLET, ONCE
     Route: 048
     Dates: start: 20151229, end: 20151229
  6. TAMOXIFEN [Concomitant]
     Active Substance: TAMOXIFEN
     Dosage: UNK
  7. CITRICAL [Concomitant]
     Active Substance: CALCIUM CITRATE

REACTIONS (8)
  - Nausea [Recovering/Resolving]
  - Eye contusion [Recovering/Resolving]
  - Wrong technique in product usage process [Unknown]
  - Syncope [Recovering/Resolving]
  - Nausea [Recovering/Resolving]
  - Diarrhoea [Recovering/Resolving]
  - Incoherent [Recovering/Resolving]
  - Rotator cuff syndrome [Recovering/Resolving]

NARRATIVE: CASE EVENT DATE: 20151219
